FAERS Safety Report 16109616 (Version 2)
Quarter: 2019Q1

REPORT INFORMATION
  Report Type: Report from Study
  Country: PT (occurrence: PT)
  Receive Date: 20190324
  Receipt Date: 20190329
  Transmission Date: 20190418
  Serious: Yes (Life-Threatening, Hospitalization)
  Sender: FDA-Public Use
  Company Number: PT-CELLTRION INC.-2019PT019457

PATIENT

DRUGS (11)
  1. REMSIMA [Suspect]
     Active Substance: INFLIXIMAB
     Dosage: 300 MG (WEIGHT 60 KG)
     Route: 042
     Dates: start: 20170718
  2. REMSIMA [Suspect]
     Active Substance: INFLIXIMAB
     Dosage: 295 MG (WEIGHT: 59 KG)
     Route: 042
     Dates: start: 20170918, end: 20170918
  3. REMSIMA [Suspect]
     Active Substance: INFLIXIMAB
     Dosage: 300 MG (WEIGHT: 60 KG)
     Route: 042
     Dates: start: 20180625, end: 20180625
  4. REMSIMA [Suspect]
     Active Substance: INFLIXIMAB
     Indication: INFLAMMATORY BOWEL DISEASE
     Dosage: 300 MG (WEIGHT: 60 KG)
     Route: 042
     Dates: start: 20170523
  5. REMSIMA [Suspect]
     Active Substance: INFLIXIMAB
     Dosage: 300 MG (WEIGHT: 60 KG)
     Route: 042
     Dates: start: 20180305, end: 20180305
  6. REMSIMA [Suspect]
     Active Substance: INFLIXIMAB
     Dosage: UNK, UNK (RESTARTED)
     Route: 042
     Dates: start: 20190121
  7. REMSIMA [Suspect]
     Active Substance: INFLIXIMAB
     Dosage: 290 MG (WEIGHT: 58 KG)
     Route: 042
     Dates: start: 20171113, end: 20171113
  8. REMSIMA [Suspect]
     Active Substance: INFLIXIMAB
     Dosage: 300 MG (WEIGHT: 60 KG)
     Route: 042
     Dates: start: 20180823
  9. REMSIMA [Suspect]
     Active Substance: INFLIXIMAB
     Dosage: 300 MG (WEIGHT: 60 KG)
     Route: 042
     Dates: start: 20180108, end: 20180108
  10. MESALAZINE [Concomitant]
     Active Substance: MESALAMINE
     Indication: INFLAMMATORY BOWEL DISEASE
     Dosage: 4 GRAM, QD
     Route: 048
     Dates: start: 201505
  11. REMSIMA [Suspect]
     Active Substance: INFLIXIMAB
     Dosage: 300 MG (WEIGHT: 60 KG)
     Route: 042
     Dates: start: 20180430, end: 20180430

REACTIONS (1)
  - Condition aggravated [Recovered/Resolved]

NARRATIVE: CASE EVENT DATE: 20181014
